FAERS Safety Report 5676114-5 (Version None)
Quarter: 2008Q1

REPORT INFORMATION
  Report Type: 
  Country: None (occurrence: None)
  Receive Date: 20080321
  Receipt Date: 20080312
  Transmission Date: 20080703
  Serious: Yes (Death, Hospitalization)
  Sender: FDA-Public Use
  Company Number: JP-ROCHE-528702

PATIENT
  Age: 64 Year
  Sex: Male

DRUGS (9)
  1. DENOSINE IV [Suspect]
     Dosage: FORM: INFUSION
     Route: 041
     Dates: start: 20070921, end: 20070925
  2. GASLON N [Concomitant]
     Route: 048
     Dates: start: 20060101, end: 20071028
  3. ROCALTROL [Concomitant]
     Route: 048
     Dates: start: 20060101, end: 20071028
  4. BAKTAR [Concomitant]
     Route: 048
     Dates: start: 20060101, end: 20071028
  5. DIFLUCAN [Concomitant]
     Route: 048
     Dates: start: 20060101, end: 20071028
  6. OMEPRAL [Concomitant]
     Route: 048
     Dates: start: 20060101, end: 20071028
  7. GASMOTIN [Concomitant]
     Route: 048
     Dates: start: 20060101
  8. RINDERON-VG [Concomitant]
     Route: 061
     Dates: start: 20070922
  9. AZUNOL [Concomitant]
     Dates: start: 20070922

REACTIONS (1)
  - DRUG ERUPTION [None]
